FAERS Safety Report 20883843 (Version 3)
Quarter: 2022Q4

REPORT INFORMATION
  Report Type: Spontaneous
  Country: US (occurrence: US)
  Receive Date: 20220527
  Receipt Date: 20221214
  Transmission Date: 20230113
  Serious: Yes (Other)
  Sender: FDA-Public Use
  Company Number: US-VERTEX PHARMACEUTICALS-2022-006488

PATIENT
  Age: 23 Year
  Sex: Female
  Weight: 70 kg

DRUGS (23)
  1. TRIKAFTA [Suspect]
     Active Substance: ELEXACAFTOR\IVACAFTOR\TEZACAFTOR
     Indication: Cystic fibrosis
     Dosage: 2 TABS AM; 1 TAB PM
     Route: 048
     Dates: start: 20200117
  2. ALBUTEROL [Concomitant]
     Active Substance: ALBUTEROL
     Dosage: 2.5MG, 3ML FOR 30 DAYS
  3. PROAIR HFA [Concomitant]
     Active Substance: ALBUTEROL SULFATE
     Indication: Wheezing
     Dosage: INHALE 2 PUFFS EVERY 4 HRS AS NEEDED
  4. BUDESONIDE\FORMOTEROL [Concomitant]
     Active Substance: BUDESONIDE\FORMOTEROL
     Dosage: 80MCG, 4.5MCG, 2PUFF, BID FOR 30 DAYS
  5. BUSPIRONE [Concomitant]
     Active Substance: BUSPIRONE HYDROCHLORIDE
     Dosage: 1 TAB FOR 30 DAYS
     Route: 048
  6. CHOLECALCIFEROL [Concomitant]
     Active Substance: CHOLECALCIFEROL
     Dosage: 50,000IU FOR 30 DAYS
     Route: 048
  7. FEXOFENADINE [Concomitant]
     Active Substance: FEXOFENADINE HYDROCHLORIDE
     Dosage: EVERY DAY
     Route: 048
  8. LANTUS [Concomitant]
     Active Substance: INSULIN GLARGINE
     Dosage: 100UNIT/ML
     Route: 058
  9. FLUOXETINE [Concomitant]
     Active Substance: FLUOXETINE HYDROCHLORIDE
     Dosage: 40MG. 2CAP EVERYDAY FOR 30 DAYS
  10. FLUTICASONE [Concomitant]
     Active Substance: FLUTICASONE
     Dosage: SPRAY 1 SPRAY INTO EACH NOSTRIL
  11. HUMALOG [Concomitant]
     Active Substance: INSULIN LISPRO
     Dosage: 10 UNITS, SQ, TIDAC FOR 90 DAYS
  12. LEVOTHYROXINE [Concomitant]
     Active Substance: LEVOTHYROXINE
     Dosage: 1 TAB
     Route: 048
  13. LINZESS [Concomitant]
     Active Substance: LINACLOTIDE
     Dosage: 1 CAP, EVERYDAY FOR 30 DAYS
  14. PROCARDIA [Concomitant]
     Active Substance: NIFEDIPINE
     Dosage: 1 TAB, EVERYDAY FOR 30 DAYS
  15. CREON [Concomitant]
     Active Substance: PANCRELIPASE AMYLASE\PANCRELIPASE LIPASE\PANCRELIPASE PROTEASE
     Dosage: 36000 UNITS, TAKE 4 CAPS
     Route: 048
  16. PYRIDOXINE [Concomitant]
     Active Substance: PYRIDOXINE
     Dosage: 25MG 1 TAB, FOR 90 DAYS
     Route: 048
  17. MIRALAX [Concomitant]
     Active Substance: POLYETHYLENE GLYCOL 3350
     Dosage: EVERYDAY
     Route: 048
  18. SODIUM CHLORIDE [Concomitant]
     Active Substance: SODIUM CHLORIDE
     Dosage: 0.28 QM, 4ML BID FOR 30 DAYS
  19. ACTIGALL [Concomitant]
     Active Substance: URSODIOL
     Dosage: 1 CAP, BID FOR 30 DAYS
  20. ZALEPLON [Concomitant]
     Active Substance: ZALEPLON
     Dosage: 1 CAP, QHS FOR 30 DAYS
     Route: 048
  21. AZITHROMYCIN [Concomitant]
     Active Substance: AZITHROMYCIN
     Dosage: 1 TAB FOR 30 DAYS
     Route: 048
  22. ZOFRAN [Concomitant]
     Active Substance: ONDANSETRON HYDROCHLORIDE
     Indication: Nausea
     Dosage: 4MG, 1 CAP FOR 30 DAYS
     Route: 048
  23. ZOFRAN [Concomitant]
     Active Substance: ONDANSETRON HYDROCHLORIDE
     Indication: Vomiting

REACTIONS (8)
  - Pre-eclampsia [Unknown]
  - Premature delivery [Unknown]
  - Sinusitis bacterial [Recovered/Resolved]
  - Oedema [Unknown]
  - Gastrooesophageal reflux disease [Unknown]
  - Pelvic discomfort [Unknown]
  - Insulin resistance [Unknown]
  - Exposure during pregnancy [Unknown]

NARRATIVE: CASE EVENT DATE: 20220410
